FAERS Safety Report 20079370 (Version 1)
Quarter: 2021Q4

REPORT INFORMATION
  Report Type: Spontaneous
  Country: ES (occurrence: ES)
  Receive Date: 20211117
  Receipt Date: 20211117
  Transmission Date: 20220303
  Serious: Yes (Other)
  Sender: FDA-Public Use
  Company Number: ES-BAXTER-2021BAX036141

PATIENT
  Sex: Male

DRUGS (2)
  1. EXTRANEAL [Suspect]
     Active Substance: CALCIUM CHLORIDE\ICODEXTRIN\MAGNESIUM CHLORIDE\SODIUM CHLORIDE\SODIUM LACTATE
     Indication: Peritoneal dialysis
     Dosage: 1 BAG
     Route: 033
  2. CALCIUM CL\DEXTROSE\MAGNESIUM CL\SODIUM BICAR\SODIUM CL\SODIUM LACT [Suspect]
     Active Substance: CALCIUM CL\DEXTROSE\MAGNESIUM CL\SODIUM BICAR\SODIUM CL\SODIUM LACT
     Indication: Peritoneal dialysis
     Dosage: 2 BAG
     Route: 033

REACTIONS (2)
  - Peritoneal dialysis complication [Recovered/Resolved]
  - Peritonitis bacterial [Recovered/Resolved]
